FAERS Safety Report 13122757 (Version 1)
Quarter: 2017Q1

REPORT INFORMATION
  Report Type: Spontaneous
  Country: NZ (occurrence: NZ)
  Receive Date: 20170117
  Receipt Date: 20170117
  Transmission Date: 20170428
  Serious: Yes (Life-Threatening, Hospitalization, Other)
  Sender: FDA-Public Use
  Company Number: NZ-MYLANLABS-2017M1001665

PATIENT

DRUGS (2)
  1. LOSARTAN. [Suspect]
     Active Substance: LOSARTAN
     Indication: PRODUCT USED FOR UNKNOWN INDICATION
     Dosage: 2,7000MG (27 TIMES MAXIMUM DAILY DOSE)
     Route: 048
  2. AMLODIPINE [Suspect]
     Active Substance: AMLODIPINE BESYLATE
     Indication: PRODUCT USED FOR UNKNOWN INDICATION
     Dosage: 200MG (20 TIMES DAILY DOSE)
     Route: 048

REACTIONS (6)
  - Renal failure [Recovered/Resolved]
  - Hypotension [Unknown]
  - Respiratory failure [Unknown]
  - Electrocardiogram ST segment depression [Unknown]
  - Metabolic acidosis [Unknown]
  - Intentional overdose [Recovered/Resolved]
